FAERS Safety Report 21559963 (Version 3)
Quarter: 2023Q2

REPORT INFORMATION
  Report Type: Spontaneous
  Country: FR (occurrence: FR)
  Receive Date: 20221107
  Receipt Date: 20230525
  Transmission Date: 20230721
  Serious: Yes (Hospitalization, Disabling, Other)
  Sender: FDA-Public Use
  Company Number: FR-SERVIER-S20011545

PATIENT
  Age: 72 Year
  Sex: Male
  Weight: 70 kg

DRUGS (2)
  1. OFLOXACIN [Suspect]
     Active Substance: OFLOXACIN
     Indication: Urinary tract infection
     Dosage: 400 MG, QD (400 MG, QD2 DOSAGE FORM, QD)
     Route: 065
     Dates: start: 20200918, end: 20200921
  2. DIOSMIN [Suspect]
     Active Substance: DIOSMIN
     Indication: Pain in extremity
     Dosage: UNK, QD (BID)
     Route: 065

REACTIONS (13)
  - Gastric ulcer [Unknown]
  - Dyspnoea [Unknown]
  - Neck pain [Recovered/Resolved with Sequelae]
  - Paralysis [Recovering/Resolving]
  - Pain in extremity [Recovered/Resolved with Sequelae]
  - Nausea [Recovered/Resolved]
  - Myalgia [Recovered/Resolved with Sequelae]
  - Vomiting [Unknown]
  - Tendonitis [Unknown]
  - Amnesia [Unknown]
  - Vertigo [Unknown]
  - Dizziness [Unknown]
  - Off label use [Unknown]

NARRATIVE: CASE EVENT DATE: 20200918
